FAERS Safety Report 13347430 (Version 1)
Quarter: 2017Q1

REPORT INFORMATION
  Report Type: Report from Study
  Country: CA (occurrence: CA)
  Receive Date: 20170317
  Receipt Date: 20170317
  Transmission Date: 20170428
  Serious: Yes (Other)
  Sender: FDA-Public Use
  Company Number: CA-HLSUS-2017-CA-000238

PATIENT
  Sex: Female

DRUGS (5)
  1. QUETIAPINE. [Concomitant]
     Active Substance: QUETIAPINE
     Dosage: 100 MG, 1 DOSE IN FEB AND 2 DOSES IN MAR
     Dates: start: 201702
  2. NICOTINE GUM [Concomitant]
     Active Substance: NICOTINE
     Dosage: 1 DOSE IN FEB
     Dates: start: 201702
  3. CLOZARIL [Suspect]
     Active Substance: CLOZAPINE
     Route: 048
     Dates: start: 20161025
  4. LACTULOSE. [Concomitant]
     Active Substance: LACTULOSE
     Dosage: 1 DOSE IN MAR
     Dates: start: 201703
  5. MILK OF MAGNESIA-CASCARA [Concomitant]
     Dosage: 3 DOSES IN MAR
     Dates: start: 201703

REACTIONS (1)
  - Hepatic enzyme increased [Unknown]
